FAERS Safety Report 10134803 (Version 1)
Quarter: 2014Q2

REPORT INFORMATION
  Report Type: Report from Study
  Country: CA (occurrence: CA)
  Receive Date: 20140428
  Receipt Date: 20140428
  Transmission Date: 20141212
  Serious: Yes (Other)
  Sender: FDA-Public Use
  Company Number: CA-ABBVIE-14P-028-1227616-00

PATIENT
  Age: 66 Year
  Sex: Female
  Weight: 81.72 kg

DRUGS (1)
  1. HUMIRA [Suspect]
     Indication: PSORIATIC ARTHROPATHY
     Dosage: LATEST HUMIRA DOSE: 14-APR-2014
     Route: 058
     Dates: start: 20090910

REACTIONS (13)
  - Intervertebral disc protrusion [Unknown]
  - Back pain [Unknown]
  - Back disorder [Not Recovered/Not Resolved]
  - Drug ineffective [Unknown]
  - Arthralgia [Not Recovered/Not Resolved]
  - Hypoaesthesia [Recovering/Resolving]
  - Gait disturbance [Recovering/Resolving]
  - Impaired driving ability [Recovering/Resolving]
  - Procedural haemorrhage [Recovered/Resolved]
  - Pain [Unknown]
  - Nasal congestion [Not Recovered/Not Resolved]
  - Mental impairment [Not Recovered/Not Resolved]
  - Major depression [Unknown]
